FAERS Safety Report 7114058-2 (Version None)
Quarter: 2010Q4

REPORT INFORMATION
  Report Type: 
  Country: None (occurrence: None)
  Receive Date: 20101119
  Receipt Date: 20101112
  Transmission Date: 20110411
  Serious: Yes (Hospitalization)
  Sender: FDA-Public Use
  Company Number: JP-B.I. PHARMACEUTICALS,INC./RIDGEFIELD-2010-BP-11803NB

PATIENT
  Age: 53 Year
  Sex: Female

DRUGS (2)
  1. MICARDIS [Suspect]
     Indication: HYPERTENSION
     Dosage: 40 MG
     Route: 048
     Dates: start: 20090714, end: 20101011
  2. NATRIX [Concomitant]
     Dosage: 1 MG
     Route: 048
     Dates: start: 20091022, end: 20101011

REACTIONS (1)
  - HYPOGLYCAEMIA [None]
